FAERS Safety Report 4604199-3 (Version None)
Quarter: 2005Q2

REPORT INFORMATION
  Report Type: 
  Country: None (occurrence: None)
  Receive Date: 20050214
  Receipt Date: 20041110
  Transmission Date: 20051028
  Serious: No
  Sender: FDA-Public Use
  Company Number: US_0401100184

PATIENT
  Age: 71 Year
  Sex: Male
  Weight: 77 kg

DRUGS (7)
  1. CIALIS [Suspect]
     Indication: ERECTILE DYSFUNCTION
     Dosage: 30 MG
  2. RABEPRAZOLE SODIUM [Concomitant]
  3. ATENOLOL [Concomitant]
  4. ASPIRIN [Concomitant]
  5. VITAMIN C [Concomitant]
  6. VITAMINS NOS [Concomitant]
  7. VITAMIN E [Concomitant]

REACTIONS (3)
  - ACCIDENTAL OVERDOSE [None]
  - DRUG INEFFECTIVE [None]
  - THERAPEUTIC RESPONSE DECREASED [None]
